FAERS Safety Report 4298967-8 (Version None)
Quarter: 2004Q1

REPORT INFORMATION
  Report Type: 
  Country: None (occurrence: None)
  Receive Date: 20040217
  Receipt Date: 20031204
  Transmission Date: 20041129
  Serious: Yes (Life-Threatening, Hospitalization, Disabling)
  Sender: FDA-Public Use
  Company Number: 6812

PATIENT
  Age: 46 Year
  Sex: Male

DRUGS (4)
  1. METHOTREXATE [Suspect]
     Indication: LEUKAEMIA
     Dosage: 15 MG IT
     Route: 037
  2. METHOTREXATE [Suspect]
     Indication: NERVOUS SYSTEM DISORDER
     Dosage: 15 MG IT
     Route: 037
  3. CYTARABINE [Suspect]
     Dosage: 40 MG IT
     Route: 037
  4. DEXAMETHASONE [Concomitant]

REACTIONS (4)
  - GENERAL PHYSICAL HEALTH DETERIORATION [None]
  - HEARING IMPAIRED [None]
  - NEUROPATHY [None]
  - PARAPLEGIA [None]
